FAERS Safety Report 8231890 (Version 2)
Quarter: 2012Q4

REPORT INFORMATION
  Report Type: 
  Country: US (occurrence: US)
  Receive Date: 20111106
  Receipt Date: 20121107
  Transmission Date: 20130627
  Serious: No
  Sender: FDA-Public Use
  Company Number: US-AMGEN-USASP2011046311

PATIENT
  Age: 55 Year
  Sex: Female
  Weight: 64.4 kg

DRUGS (5)
  1. ENBREL [Suspect]
     Indication: PRODUCT USED FOR UNKNOWN INDICATION
     Dosage: 50 mg, qwk
     Route: 058
  2. SYNTHROID [Concomitant]
     Dosage: 88 mug, UNK
  3. PREVACID [Concomitant]
     Dosage: 30 mg, UNK
  4. CALCIUM 600 + D [Concomitant]
     Dosage: UNK
  5. CELEBREX [Concomitant]
     Dosage: 100 mg, UNK

REACTIONS (3)
  - Dizziness [Unknown]
  - Nausea [Unknown]
  - Arthralgia [Unknown]
